FAERS Safety Report 12609323 (Version 1)
Quarter: 2016Q3

REPORT INFORMATION
  Report Type: Spontaneous
  Country: US (occurrence: US)
  Receive Date: 20160801
  Receipt Date: 20160801
  Transmission Date: 20161109
  Serious: No
  Sender: FDA-Public Use
  Company Number: US-BIOGEN-2016BI00272283

PATIENT
  Sex: Female

DRUGS (1)
  1. TYSABRI [Suspect]
     Active Substance: NATALIZUMAB
     Indication: PRODUCT USED FOR UNKNOWN INDICATION
     Dosage: INFUSED OVER 1 HOUR
     Route: 065

REACTIONS (10)
  - Erythema [Recovered/Resolved]
  - Feeling hot [Recovered/Resolved]
  - Feeling abnormal [Recovered/Resolved]
  - Dyschromatopsia [Not Recovered/Not Resolved]
  - Pain in jaw [Recovered/Resolved]
  - Pain in extremity [Recovered/Resolved]
  - Chest discomfort [Recovered/Resolved]
  - Throat irritation [Recovered/Resolved]
  - Neck pain [Recovered/Resolved]
  - Fear [Recovered/Resolved]
